FAERS Safety Report 4869732-5 (Version None)
Quarter: 2005Q4

REPORT INFORMATION
  Report Type: 
  Country: None (occurrence: None)
  Receive Date: 20051223
  Receipt Date: 20051213
  Transmission Date: 20060501
  Serious: Yes (Hospitalization)
  Sender: FDA-Public Use
  Company Number: 2005BI021117

PATIENT
  Age: 52 Year
  Sex: Male

DRUGS (3)
  1. AVONEX [Suspect]
     Indication: MULTIPLE SCLEROSIS
     Dosage: 30 UG; QW; IM
     Route: 030
     Dates: start: 19960701
  2. WELLBUTRIN [Concomitant]
  3. PRILOSEC [Concomitant]

REACTIONS (3)
  - ASTHENIA [None]
  - MEMORY IMPAIRMENT [None]
  - PROSTATE CANCER [None]
